FAERS Safety Report 6611038-8 (Version None)
Quarter: 2010Q1

REPORT INFORMATION
  Report Type: 
  Country: None (occurrence: None)
  Receive Date: 20100303
  Receipt Date: 20100217
  Transmission Date: 20100710
  Serious: Yes (Death, Other)
  Sender: FDA-Public Use
  Company Number: GB-RANBAXY-2010RR-30764

PATIENT
  Age: 27 Year
  Sex: Female

DRUGS (4)
  1. AMOXICILLIN [Suspect]
     Indication: PYREXIA
     Dosage: 500 MG, UNK
  2. AMOXICILLIN [Suspect]
     Indication: MALAISE
  3. MINOCYCLINE HCL [Suspect]
     Indication: SKIN IRRITATION
     Dosage: 100 MG, QD
     Dates: start: 20080528, end: 20080616
  4. ZYNERIT [Concomitant]
     Indication: ACNE
     Dosage: UNK
     Dates: start: 20080509

REACTIONS (4)
  - DRUG HYPERSENSITIVITY [None]
  - HEPATIC NECROSIS [None]
  - MULTI-ORGAN FAILURE [None]
  - VIRAL INFECTION [None]
